FAERS Safety Report 8487411-2 (Version None)
Quarter: 2012Q2

REPORT INFORMATION
  Report Type: 
  Country: None (occurrence: None)
  Receive Date: 20120628
  Receipt Date: 20120628
  Transmission Date: 20120825
  Serious: Yes (Disabling)
  Sender: FDA-Public Use
  Company Number: None

PATIENT
  Sex: Male
  Weight: 81.6475 kg

DRUGS (1)
  1. ZICAM COLD REMEDY NASAL GEL NA ZICAM, LLC [Suspect]
     Indication: NASOPHARYNGITIS
     Dosage: ONE PUMP PER NOSTRIL ONCE EVERY 4 HOURS NASAL
     Route: 045
     Dates: start: 20040101, end: 20070101

REACTIONS (1)
  - ANOSMIA [None]
